FAERS Safety Report 7887877-2 (Version None)
Quarter: 2011Q4

REPORT INFORMATION
  Report Type: 
  Country: None (occurrence: None)
  Receive Date: 20111103
  Receipt Date: 20111103
  Transmission Date: 20120403
  Serious: Yes (Other)
  Sender: FDA-Public Use
  Company Number: None

PATIENT
  Age: 27 Year
  Sex: Female
  Weight: 58.967 kg

DRUGS (1)
  1. LAMISIL [Suspect]
     Indication: ONYCHOMYCOSIS
     Dosage: 250MG TABLET ONCE PER DAY
     Route: 048
     Dates: start: 20110901, end: 20111013

REACTIONS (6)
  - AGEUSIA [None]
  - WEIGHT DECREASED [None]
  - MALAISE [None]
  - EATING DISORDER [None]
  - PRODUCT QUALITY ISSUE [None]
  - DEPRESSION [None]
